FAERS Safety Report 15340575 (Version 2)
Quarter: 2018Q3

REPORT INFORMATION
  Report Type: Report from Study
  Country: US (occurrence: US)
  Receive Date: 20180831
  Receipt Date: 20180918
  Transmission Date: 20181010
  Serious: Yes (Hospitalization, Other)
  Sender: FDA-Public Use
  Company Number: US-ACTELION-A-NJ2017-149688

PATIENT
  Age: 17 Year
  Sex: Male
  Weight: 56.69 kg

DRUGS (4)
  1. UPTRAVI [Suspect]
     Active Substance: SELEXIPAG
     Indication: PULMONARY HYPERTENSION
     Dosage: 400 MCG, BID
     Route: 048
  2. UPTRAVI [Suspect]
     Active Substance: SELEXIPAG
     Dosage: 1600 MCG, BID
     Route: 048
  3. OPSUMIT [Suspect]
     Active Substance: MACITENTAN
     Indication: PULMONARY HYPERTENSION
     Dosage: 10 MG, QD
     Route: 048
  4. ADCIRCA [Concomitant]
     Active Substance: TADALAFIL

REACTIONS (13)
  - Pleural effusion [Unknown]
  - Lung disorder [Unknown]
  - Cyanosis [Unknown]
  - Wheezing [Unknown]
  - Hypotension [Unknown]
  - Headache [Unknown]
  - Pyrexia [Unknown]
  - Diarrhoea [Unknown]
  - Abdominal pain upper [Unknown]
  - Dyspepsia [Unknown]
  - Malaise [Unknown]
  - Weight increased [Unknown]
  - Breath sounds abnormal [Unknown]

NARRATIVE: CASE EVENT DATE: 20170206
